FAERS Safety Report 7739006-3 (Version None)
Quarter: 2011Q3

REPORT INFORMATION
  Report Type: 
  Country: None (occurrence: None)
  Receive Date: 20110909
  Receipt Date: 20110830
  Transmission Date: 20111222
  Serious: No
  Sender: FDA-Public Use
  Company Number: US-BIOGENIDEC-2011BI033594

PATIENT
  Age: 37 Year
  Sex: Male

DRUGS (2)
  1. TYSABRI [Suspect]
     Indication: MULTIPLE SCLEROSIS
     Route: 042
     Dates: start: 20100505
  2. TYSABRI [Suspect]
     Route: 042
     Dates: start: 20080708, end: 20090526

REACTIONS (4)
  - DIZZINESS [None]
  - NAUSEA [None]
  - AMNESIA [None]
  - HEADACHE [None]
